FAERS Safety Report 7797239-4 (Version None)
Quarter: 2011Q4

REPORT INFORMATION
  Report Type: 
  Country: None (occurrence: None)
  Receive Date: 20111005
  Receipt Date: 20110809
  Transmission Date: 20120403
  Serious: Yes (Other)
  Sender: FDA-Public Use
  Company Number: BR-RANBAXY-2009R5-28081

PATIENT

DRUGS (1)
  1. LORAZEPAM [Suspect]
     Dosage: 2 MG, QD
     Route: 048
     Dates: start: 20090807

REACTIONS (4)
  - DRUG INEFFECTIVE [None]
  - WITHDRAWAL SYNDROME [None]
  - BLOOD PRESSURE INCREASED [None]
  - APPARENT DEATH [None]
